FAERS Safety Report 10233473 (Version 1)
Quarter: 2014Q2

REPORT INFORMATION
  Report Type: Spontaneous
  Country: US (occurrence: US)
  Receive Date: 20140612
  Receipt Date: 20140612
  Transmission Date: 20141212
  Serious: Yes (Other)
  Sender: FDA-Public Use
  Company Number: US-BAYER-2014-086134

PATIENT
  Age: 19 Year
  Sex: Female

DRUGS (2)
  1. LEVONORGESTREL [Suspect]
     Dosage: UNK UNK, CONT
     Route: 015
  2. LEVONORGESTREL [Suspect]
     Dosage: UNK UNK, CONT
     Route: 015

REACTIONS (2)
  - Genital haemorrhage [None]
  - Off label use [None]
